FAERS Safety Report 8877631 (Version 1)
Quarter: 2012Q4

REPORT INFORMATION
  Report Type: Spontaneous
  Country: US (occurrence: None)
  Receive Date: 20121031
  Receipt Date: 20121031
  Transmission Date: 20130627
  Serious: Yes (Other)
  Sender: FDA-Public Use
  Company Number: None

PATIENT
  Age: 10 Year
  Sex: Male
  Weight: 57.15 kg

DRUGS (1)
  1. ADDERALL [Suspect]
     Route: 048

REACTIONS (3)
  - Tic [None]
  - Bruxism [None]
  - Product substitution issue [None]
